FAERS Safety Report 24020685 (Version 1)
Quarter: 2024Q2

REPORT INFORMATION
  Report Type: Spontaneous
  Country: ES (occurrence: ES)
  Receive Date: 20240627
  Receipt Date: 20240627
  Transmission Date: 20240716
  Serious: Yes (Other)
  Sender: FDA-Public Use
  Company Number: ES-SA-SAC20240621001169

PATIENT
  Sex: Male
  Weight: 75.7 kg

DRUGS (1)
  1. LANTUS [Suspect]
     Active Substance: INSULIN GLARGINE
     Indication: Type 2 diabetes mellitus
     Dosage: UNK UNK, QD
     Route: 058

REACTIONS (2)
  - Neoplasm prostate [Unknown]
  - Diabetes mellitus inadequate control [Unknown]
